FAERS Safety Report 5383293-6 (Version None)
Quarter: 2007Q3

REPORT INFORMATION
  Report Type: 
  Country: None (occurrence: None)
  Receive Date: 20070710
  Receipt Date: 20070629
  Transmission Date: 20080115
  Serious: Yes (Other)
  Sender: FDA-Public Use
  Company Number: US-PFIZER INC-2007044989

PATIENT
  Sex: Female
  Weight: 56.7 kg

DRUGS (13)
  1. CHANTIX [Suspect]
     Route: 048
     Dates: start: 20070516, end: 20070523
  2. PRILOSEC [Concomitant]
  3. DYAZIDE [Concomitant]
  4. FELDENE [Concomitant]
  5. TRAZODONE HCL [Concomitant]
  6. XANAX [Concomitant]
  7. ASPIRIN [Concomitant]
  8. CRESTOR [Concomitant]
  9. ZOLOFT [Concomitant]
  10. MIRALAX [Concomitant]
  11. QVAR 40 [Concomitant]
  12. ATROVENT [Concomitant]
  13. LISINOPRIL [Concomitant]

REACTIONS (4)
  - DEHYDRATION [None]
  - HYPOTENSION [None]
  - NAUSEA [None]
  - VOMITING [None]
